FAERS Safety Report 10228391 (Version 1)
Quarter: 2014Q2

REPORT INFORMATION
  Report Type: Spontaneous
  Country: US (occurrence: None)
  Receive Date: 20140505
  Receipt Date: 20140505
  Transmission Date: 20141212
  Serious: No
  Sender: FDA-Public Use
  Company Number: US-015207

PATIENT
  Sex: Female

DRUGS (1)
  1. PICO-SALAX [Suspect]
     Indication: BOWEL PREPARATION
     Dates: start: 20140228, end: 20140228

REACTIONS (1)
  - Drug ineffective [None]
